FAERS Safety Report 6550757-9 (Version None)
Quarter: 2010Q1

REPORT INFORMATION
  Report Type: 
  Country: None (occurrence: None)
  Receive Date: 20100125
  Receipt Date: 20100112
  Transmission Date: 20100710
  Serious: Yes (Hospitalization)
  Sender: FDA-Public Use
  Company Number: PHHY2010CL02181

PATIENT
  Age: 65 Year
  Sex: Female

DRUGS (1)
  1. TAREG D [Suspect]
     Indication: HYPERTENSION
     Dosage: 160/12.5MG, 1 TABLET PER DAY
     Route: 048
     Dates: start: 20091101

REACTIONS (1)
  - KNEE OPERATION [None]
